FAERS Safety Report 10313939 (Version 1)
Quarter: 2014Q3

REPORT INFORMATION
  Report Type: Spontaneous
  Country: US (occurrence: None)
  Receive Date: 20140717
  Receipt Date: 20140717
  Transmission Date: 20150326
  Serious: Yes (Other)
  Sender: FDA-Public Use
  Company Number: None

PATIENT
  Age: 41 Year
  Sex: Female
  Weight: 92.08 kg

DRUGS (1)
  1. DULOXETINE [Suspect]
     Active Substance: DULOXETINE
     Indication: DEPRESSION
     Dosage: 60MG,11/11 PO 4D., PO
     Route: 048
     Dates: start: 20140609, end: 20140619

REACTIONS (5)
  - Confusional state [None]
  - Disturbance in attention [None]
  - Dysphemia [None]
  - Tremor [None]
  - Depression [None]

NARRATIVE: CASE EVENT DATE: 20140619
